FAERS Safety Report 9052378 (Version 2)
Quarter: 2013Q2

REPORT INFORMATION
  Report Type: Spontaneous
  Country: FR (occurrence: FR)
  Receive Date: 20130207
  Receipt Date: 20130408
  Transmission Date: 20140414
  Serious: Yes (Hospitalization, Other)
  Sender: FDA-Public Use
  Company Number: FR-VERTEX PHARMACEUTICALS INC.-2013-001603

PATIENT
  Age: 59 Year
  Sex: Male
  Weight: 63 kg

DRUGS (3)
  1. INCIVO [Suspect]
     Indication: HEPATITIS C
     Dosage: 2 DF, UNK
     Route: 048
     Dates: start: 20130102, end: 20130113
  2. PEGASYS [Suspect]
     Indication: HEPATITIS C
     Dosage: DOSAGE FORM: UNSPECIFIED
     Route: 058
     Dates: start: 20130102, end: 20130113
  3. COPEGUS [Concomitant]
     Indication: HEPATITIS C
     Dosage: DOSAGE FORM: UNSPECIFIED
     Route: 048
     Dates: start: 20130102, end: 20130113

REACTIONS (2)
  - Gingival bleeding [Recovered/Resolved]
  - Thrombocytopenia [Recovered/Resolved]
